FAERS Safety Report 9952970 (Version 1)
Quarter: 2014Q1

REPORT INFORMATION
  Report Type: Report from Study
  Country: US (occurrence: US)
  Receive Date: 20140304
  Receipt Date: 20140304
  Transmission Date: 20141002
  Serious: No
  Sender: FDA-Public Use
  Company Number: US-ABBVIE-13P-163-1080097-00

PATIENT
  Age: 53 Year
  Sex: Female

DRUGS (28)
  1. HUMIRA [Suspect]
     Indication: RHEUMATOID ARTHRITIS
     Dates: start: 20121205
  2. SULFASALAZINE [Concomitant]
     Indication: RHEUMATOID ARTHRITIS
  3. SYNTHROID [Concomitant]
     Indication: HYPOTHYROIDISM
  4. RESTASIS [Concomitant]
     Indication: DRY EYE
     Dosage: 1 DROP EACH EYE
     Route: 047
  5. FLUOXETINE HCL [Concomitant]
     Indication: DEPRESSION
  6. FLUOXETINE HCL [Concomitant]
     Indication: ANXIETY
  7. FLUTICASONE PROPANATE [Concomitant]
     Indication: HYPERSENSITIVITY
     Dosage: 1-2 SPRAY EACH NOSTRILE
  8. OMEPRAZOLE [Concomitant]
     Indication: GASTROOESOPHAGEAL REFLUX DISEASE
  9. OTC PROBOTIC [Concomitant]
     Indication: GASTROOESOPHAGEAL REFLUX DISEASE
  10. TRIAM HCTZ [Concomitant]
     Indication: HYPERTENSION
     Dosage: 37.5/25MG QD
  11. TORSEMIDE [Concomitant]
     Indication: JOINT SWELLING
  12. MUCINEX [Concomitant]
     Indication: NASAL CONGESTION
  13. ASPIRIN [Concomitant]
     Indication: PROPHYLAXIS
  14. METHOTREXATE [Concomitant]
     Indication: RHEUMATOID ARTHRITIS
  15. MOVE FREE [Concomitant]
     Indication: PROPHYLAXIS
  16. PROAIR HFA [Concomitant]
     Indication: ASTHMA
     Dosage: 2 PUFF  PRN
  17. TYLENOL [Concomitant]
     Indication: PAIN
  18. LYRICA [Concomitant]
     Indication: FIBROMYALGIA
     Dosage: Q PM
  19. LYRICA [Concomitant]
  20. SINGULAIR [Concomitant]
     Indication: ASTHMA
     Dosage: Q PM
  21. SINGULAIR [Concomitant]
     Indication: HYPERSENSITIVITY
  22. CRESTOR [Concomitant]
     Indication: BLOOD CHOLESTEROL INCREASED
     Dosage: QPM
  23. PHENTERMINE [Concomitant]
     Indication: WEIGHT DECREASED
  24. FISH OIL [Concomitant]
     Indication: SUPPLEMENTATION THERAPY
  25. CENTRUM SELECT 50+ [Concomitant]
     Indication: SUPPLEMENTATION THERAPY
  26. CALCIUM [Concomitant]
     Indication: SUPPLEMENTATION THERAPY
  27. VITAMIN D3 [Concomitant]
     Indication: SUPPLEMENTATION THERAPY
  28. IRON [Concomitant]
     Indication: SUPPLEMENTATION THERAPY
     Dosage: 1-2 PER DAY

REACTIONS (6)
  - Fibromyalgia [Not Recovered/Not Resolved]
  - Pyrexia [Not Recovered/Not Resolved]
  - Unevaluable event [Unknown]
  - Headache [Not Recovered/Not Resolved]
  - Pain [Not Recovered/Not Resolved]
  - Facial pain [Not Recovered/Not Resolved]
